FAERS Safety Report 4448513-0 (Version None)
Quarter: 2004Q3

REPORT INFORMATION
  Report Type: 
  Country: None (occurrence: None)
  Receive Date: 20040909
  Receipt Date: 20050825
  Transmission Date: 20050211
  Serious: No
  Sender: FDA-Public Use
  Company Number: 03P-028-0224185-00

PATIENT
  Age: 64 Year
  Sex: Female
  Weight: 88 kg

DRUGS (15)
  1. HUMIRA [Suspect]
     Indication: RHEUMATOID ARTHRITIS
     Dosage: 40 MG , 1 IN 2 WK, SUBCUTANEOUS
     Route: 058
     Dates: start: 20001011, end: 20030603
  2. LEVOTHYROXINE SODIUM [Concomitant]
  3. FOLIC ACID [Concomitant]
  4. CELCOXIB [Concomitant]
  5. PANTOPRAZOLE [Concomitant]
  6. FLUTICASONE PROPIONATE [Concomitant]
  7. COMBIVENT [Concomitant]
  8. METOCLOPRAMIDE HYDROCHLORIDE [Concomitant]
  9. PAROXETINE HYDROCHLORIDE [Concomitant]
  10. CALCIUM WITH VITAMIN D [Concomitant]
  11. MULTI-VITAMINS [Concomitant]
  12. CONJUGATED ESTROGEN [Concomitant]
  13. CLARITHROMYCIN [Concomitant]
  14. AMOXICILLIN [Concomitant]
  15. SOLPADEINE [Concomitant]

REACTIONS (2)
  - ABSCESS [None]
  - PYODERMA GANGRENOSUM [None]
